FAERS Safety Report 11107501 (Version 4)
Quarter: 2015Q3

REPORT INFORMATION
  Report Type: Spontaneous
  Country: US (occurrence: US)
  Receive Date: 20150512
  Receipt Date: 20150714
  Transmission Date: 20151125
  Serious: No
  Sender: FDA-Public Use
  Company Number: US-LEO PHARMA-233968

PATIENT
  Age: 59 Year
  Sex: Female

DRUGS (1)
  1. PICATO [Suspect]
     Active Substance: INGENOL MEBUTATE
     Indication: SKIN CANCER
     Route: 061
     Dates: start: 20150416, end: 20150416

REACTIONS (6)
  - Application site vesicles [Recovered/Resolved]
  - Application site oedema [Recovered/Resolved]
  - Eye swelling [Recovered/Resolved]
  - Product use issue [Unknown]
  - Incorrect drug administration duration [Unknown]
  - Application site erythema [Recovered/Resolved]

NARRATIVE: CASE EVENT DATE: 20150416
